FAERS Safety Report 6093896-1 (Version None)
Quarter: 2009Q1

REPORT INFORMATION
  Report Type: 
  Country: None (occurrence: None)
  Receive Date: 20090223
  Receipt Date: 20090216
  Transmission Date: 20090719
  Serious: Yes (Death, Life-Threatening)
  Sender: FDA-Public Use
  Company Number: 107#03#2009-00554

PATIENT
  Age: 64 Year
  Sex: Female

DRUGS (2)
  1. PACLITAXEL [Suspect]
     Indication: BREAST CANCER FEMALE
     Dosage: 18.5 MG AND 300 MG INTRAVENOUS
     Route: 042
     Dates: start: 20081211, end: 20081211
  2. GLUCOSE (GLUCOSE) [Suspect]
     Indication: BREAST CANCER FEMALE
     Dosage: 500 MG INTRAVENOUS
     Route: 042
     Dates: start: 20081211, end: 20081211

REACTIONS (1)
  - CARDIAC ARREST [None]
